FAERS Safety Report 8584179-6 (Version None)
Quarter: 2012Q3

REPORT INFORMATION
  Report Type: 
  Country: None (occurrence: None)
  Receive Date: 20120810
  Receipt Date: 20120808
  Transmission Date: 20120928
  Serious: Yes (Hospitalization, Other)
  Sender: FDA-Public Use
  Company Number: AU-AMGEN-AUSSP2012049655

PATIENT
  Age: 56 Year
  Sex: Female

DRUGS (2)
  1. XGEVA [Suspect]
     Indication: PROPHYLAXIS
  2. TAXOTERE [Concomitant]
     Indication: BREAST CANCER METASTATIC

REACTIONS (4)
  - CONVULSION [None]
  - HYPERTENSION [None]
  - ENCEPHALOPATHY [None]
  - HYPOCALCAEMIA [None]
